FAERS Safety Report 4316135-8 (Version None)
Quarter: 2004Q1

REPORT INFORMATION
  Report Type: 
  Country: None (occurrence: None)
  Receive Date: 20040310
  Receipt Date: 20040226
  Transmission Date: 20041129
  Serious: Yes (Hospitalization)
  Sender: FDA-Public Use
  Company Number: 2004-113012-NL

PATIENT
  Age: 69 Year
  Sex: Male

DRUGS (17)
  1. DANAPAROID SODIUM [Suspect]
     Indication: PORTAL VEIN THROMBOSIS
     Dosage: SEE IMAGE
     Route: 042
     Dates: start: 20030712, end: 20030717
  2. DANAPAROID SODIUM [Suspect]
     Indication: PORTAL VEIN THROMBOSIS
     Dosage: SEE IMAGE
     Route: 042
     Dates: start: 20030724, end: 20030728
  3. DANAPAROID SODIUM [Suspect]
     Indication: PORTAL VEIN THROMBOSIS
     Dosage: SEE IMAGE
     Route: 042
     Dates: start: 20030806, end: 20030810
  4. DANAPAROID SODIUM [Suspect]
     Indication: PORTAL VEIN THROMBOSIS
     Dosage: SEE IMAGE
     Route: 042
     Dates: start: 20030813
  5. DANAPAROID SODIUM [Suspect]
     Indication: PORTAL VEIN THROMBOSIS
     Dosage: SEE IMAGE
     Route: 042
     Dates: start: 20030825
  6. DANAPAROID SODIUM [Suspect]
     Indication: PORTAL VEIN THROMBOSIS
     Dosage: SEE IMAGE
     Route: 042
     Dates: start: 20030905
  7. DANAPAROID SODIUM [Suspect]
     Indication: PORTAL VEIN THROMBOSIS
     Dosage: SEE IMAGE
     Route: 042
     Dates: start: 20030909
  8. DANAPAROID SODIUM [Suspect]
     Indication: PORTAL VEIN THROMBOSIS
     Dosage: SEE IMAGE
     Route: 042
     Dates: start: 20030912
  9. GABEXATE MESILATE [Concomitant]
  10. CEFTAZIDIME [Concomitant]
  11. ANTITHROMBIN III [Concomitant]
  12. FUROSEMIDE [Concomitant]
  13. ALBUMIN (HUMAN) [Concomitant]
  14. HEPAN ED [Concomitant]
  15. LEVOFLOXACIN [Concomitant]
  16. LACTULOSE [Concomitant]
  17. SPIRONOLACTONE [Concomitant]

REACTIONS (2)
  - GASTROINTESTINAL HAEMORRHAGE [None]
  - RENAL DISORDER [None]
